FAERS Safety Report 7319445-5 (Version None)
Quarter: 2011Q1

REPORT INFORMATION
  Report Type: 
  Country: None (occurrence: None)
  Receive Date: 20110228
  Receipt Date: 20100326
  Transmission Date: 20110831
  Serious: No
  Sender: FDA-Public Use
  Company Number: A0852186A

PATIENT
  Age: 73 Year
  Sex: Male

DRUGS (12)
  1. DIGOXIN [Concomitant]
  2. CRESTOR [Concomitant]
  3. LEXAPRO [Concomitant]
  4. VIMPAT [Concomitant]
  5. ASPIRIN [Concomitant]
  6. SPIRIVA [Concomitant]
  7. METOPROLOL [Concomitant]
  8. HUMALOG [Concomitant]
  9. LUMIGAN [Concomitant]
  10. LAMICTAL [Suspect]
     Dosage: 50MG THREE TIMES PER DAY
     Route: 048
     Dates: start: 20100227
  11. COUMADIN [Concomitant]
  12. COSOPT [Concomitant]

REACTIONS (1)
  - CONTUSION [None]
